FAERS Safety Report 10408579 (Version 7)
Quarter: 2020Q4

REPORT INFORMATION
  Report Type: Report from Study
  Country: CA (occurrence: CA)
  Receive Date: 20140826
  Receipt Date: 20201105
  Transmission Date: 20210113
  Serious: Yes (Other)
  Sender: FDA-Public Use
  Company Number: PHHY2014CA104619

PATIENT
  Age: 57 Year
  Sex: Female

DRUGS (3)
  1. TASIGNA [Suspect]
     Active Substance: NILOTINIB
     Dosage: 600 MG, QD (AT ONCE)
     Route: 065
  2. TASIGNA [Suspect]
     Active Substance: NILOTINIB
     Indication: CHRONIC MYELOID LEUKAEMIA
     Dosage: 300 MG
     Route: 048
     Dates: start: 2011
  3. TASIGNA [Suspect]
     Active Substance: NILOTINIB
     Dosage: 300 MG, BID
     Route: 048
     Dates: start: 20140127

REACTIONS (18)
  - Skin disorder [Not Recovered/Not Resolved]
  - Nail discolouration [Unknown]
  - Onychomycosis [Unknown]
  - Fungal infection [Unknown]
  - Distractibility [Unknown]
  - Dermatitis contact [Unknown]
  - Nasopharyngitis [Unknown]
  - Fungal skin infection [Unknown]
  - Ear infection [Unknown]
  - Hypersensitivity [Recovering/Resolving]
  - Frequent bowel movements [Recovering/Resolving]
  - Incorrect dose administered [Unknown]
  - Onychoclasis [Unknown]
  - Onychalgia [Unknown]
  - Conjunctivitis [Unknown]
  - Food interaction [Unknown]
  - Blister [Unknown]
  - Diarrhoea [Recovering/Resolving]

NARRATIVE: CASE EVENT DATE: 201412
